FAERS Safety Report 12450904 (Version 1)
Quarter: 2016Q2

REPORT INFORMATION
  Report Type: Report from Study
  Country: DE (occurrence: DE)
  Receive Date: 20160609
  Receipt Date: 20160609
  Transmission Date: 20160815
  Serious: Yes (Hospitalization)
  Sender: FDA-Public Use
  Company Number: DE-ROCHE-1760213

PATIENT
  Age: 58 Year
  Sex: Female
  Weight: 84 kg

DRUGS (12)
  1. BEVACIZUMAB [Suspect]
     Active Substance: BEVACIZUMAB
     Indication: COLORECTAL CANCER METASTATIC
     Route: 042
     Dates: start: 20160502, end: 20160502
  2. FERINJECT [Concomitant]
     Active Substance: FERRIC CARBOXYMALTOSE
     Indication: ANAEMIA
     Route: 042
     Dates: start: 20160406, end: 20160406
  3. 5-FU [Concomitant]
     Active Substance: FLUOROURACIL
     Dosage: ALSO RECEIVED ON 18/APR/2016 AND 02/MAY/2016
     Route: 040
     Dates: start: 20160404
  4. METOPROLOL. [Concomitant]
     Active Substance: METOPROLOL
     Indication: HYPERTENSION
     Route: 048
     Dates: start: 2014
  5. VALSARTAN. [Concomitant]
     Active Substance: VALSARTAN
     Indication: HYPERTENSION
     Route: 048
     Dates: start: 2014
  6. 5-FU [Concomitant]
     Active Substance: FLUOROURACIL
     Route: 041
     Dates: start: 20160418, end: 20160420
  7. TOREM [Concomitant]
     Active Substance: TORSEMIDE
     Indication: HYPERTENSION
     Route: 048
     Dates: start: 2014
  8. OXALIPLATIN. [Suspect]
     Active Substance: OXALIPLATIN
     Indication: COLORECTAL CANCER METASTATIC
     Route: 065
     Dates: start: 20160404, end: 20160502
  9. FOLINIC ACID [Suspect]
     Active Substance: LEUCOVORIN
     Indication: COLORECTAL CANCER METASTATIC
     Route: 065
     Dates: start: 20160404, end: 20160418
  10. FOLINIC ACID [Suspect]
     Active Substance: LEUCOVORIN
     Route: 065
     Dates: start: 20160502, end: 20160502
  11. 5-FU [Concomitant]
     Active Substance: FLUOROURACIL
     Indication: COLORECTAL CANCER METASTATIC
     Route: 041
     Dates: start: 20160404, end: 20160406
  12. 5-FU [Concomitant]
     Active Substance: FLUOROURACIL
     Route: 041
     Dates: start: 20160502, end: 20160504

REACTIONS (2)
  - Seizure [Recovered/Resolved]
  - Encephalitis [Recovered/Resolved]

NARRATIVE: CASE EVENT DATE: 20160512
